FAERS Safety Report 8528550 (Version 9)
Quarter: 2013Q4

REPORT INFORMATION
  Report Type: Spontaneous
  Country: CA (occurrence: CA)
  Receive Date: 20120424
  Receipt Date: 20131230
  Transmission Date: 20140711
  Serious: Yes (Other)
  Sender: FDA-Public Use
  Company Number: CA-ROCHE-1061911

PATIENT
  Age: 76 Year
  Sex: Male

DRUGS (7)
  1. XOLAIR [Suspect]
     Indication: ASTHMA
     Route: 058
     Dates: start: 20110927
  2. XOLAIR [Suspect]
     Route: 058
     Dates: start: 20130416, end: 20131111
  3. XOLAIR [Suspect]
     Route: 058
     Dates: start: 20130318
  4. FLOVENT [Concomitant]
  5. VENTOLIN [Concomitant]
  6. ATROVENT [Concomitant]
  7. PREDNISONE [Concomitant]

REACTIONS (13)
  - Haematochezia [Unknown]
  - Oropharyngeal pain [Unknown]
  - Cough [Unknown]
  - Myalgia [Unknown]
  - Musculoskeletal chest pain [Unknown]
  - Oxygen saturation decreased [Unknown]
  - Abdominal pain upper [Unknown]
  - Blood pressure systolic increased [Unknown]
  - Dyspnoea [Unknown]
  - Emphysema [Unknown]
  - Gastroenteritis [Unknown]
  - Asthma [Unknown]
  - Drug ineffective [Unknown]
